FAERS Safety Report 8184259 (Version 2)
Quarter: 2013Q1

REPORT INFORMATION
  Report Type: Report from Study
  Country: BR (occurrence: BR)
  Receive Date: 20111017
  Receipt Date: 20130110
  Transmission Date: 20140127
  Serious: Yes (Other)
  Sender: FDA-Public Use
  Company Number: BR-ABBOTT-11P-020-0863018-00

PATIENT
  Age: 44 None
  Sex: Female
  Weight: 57 kg

DRUGS (8)
  1. HUMIRA 40 MG/ 0.8 ML PRE-FILLED SYRINGE [Suspect]
     Indication: CROHN^S DISEASE
     Route: 058
     Dates: start: 20110415
  2. HUMIRA 40 MG/ 0.8 ML PRE-FILLED SYRINGE [Suspect]
  3. HUMIRA 40 MG/ 0.8 ML PRE-FILLED SYRINGE [Suspect]
  4. UNKNOWN ANTIBIOTICS [Suspect]
     Indication: PRODUCT USED FOR UNKNOWN INDICATION
  5. DIMENHYDRINATE [Concomitant]
     Indication: PAIN
     Route: 048
  6. SCOPOLAMINE BUTYLBROMIDE (BUSCOPAN) [Concomitant]
     Indication: PAIN
     Route: 048
  7. DORILESS [Concomitant]
     Indication: MUSCLE RELAXANT THERAPY
     Dosage: SODIUM DIPYRONE + PROMETHAZINE HYDROCHLORIDE + ADIPHENINE HYDROCHLORIDE
     Route: 048
     Dates: start: 20110925
  8. BROMAZEPAM [Concomitant]
     Indication: SLEEP DISORDER THERAPY
     Route: 048

REACTIONS (12)
  - Feeling abnormal [Recovering/Resolving]
  - Vomiting [Recovering/Resolving]
  - Diarrhoea [Recovering/Resolving]
  - Syncope [Recovering/Resolving]
  - Weight decreased [Unknown]
  - Diarrhoea [Not Recovered/Not Resolved]
  - Decreased appetite [Recovered/Resolved]
  - Localised infection [Not Recovered/Not Resolved]
  - Hypersensitivity [Recovered/Resolved]
  - Herpes zoster [Unknown]
  - Intestinal mass [Unknown]
  - Decreased appetite [Not Recovered/Not Resolved]
